FAERS Safety Report 8745957 (Version 2)
Quarter: 2012Q4

REPORT INFORMATION
  Report Type: 
  Country: GB (occurrence: GB)
  Receive Date: 20120827
  Receipt Date: 20120906
  Transmission Date: 20130627
  Serious: Yes (Other)
  Sender: FDA-Public Use
  Company Number: GB-ACCORD-014491

PATIENT
  Age: 61 Year
  Sex: Female
  Weight: 78.46 kg

DRUGS (6)
  1. SIMVASTATIN [Suspect]
     Indication: DRUG USE FOR UNKNOWN INDICATION
     Route: 048
     Dates: start: 20120310
  2. AMLODIPINE [Suspect]
     Indication: DRUG USE FOR UNKNOWN INDICATION
  3. PERINDOPRIL [Suspect]
     Indication: DRUG USE FOR UNKNOWN INDICATION
  4. ATORVASTATIN [Suspect]
     Indication: DRUG USE FOR UNKNOWN INDICATION
     Route: 048
     Dates: start: 20120710, end: 20120731
  5. ASPIRIN [Suspect]
     Indication: DRUG USE FOR UNKNOWN INDICATION
  6. DIPYRIDAMOLE [Suspect]
     Indication: DRUG USE FOR UNKNOWN INDICATION

REACTIONS (3)
  - Renal disorder [Recovered/Resolved]
  - Abdominal pain [Unknown]
  - Muscle spasms [Unknown]
